FAERS Safety Report 20960518 (Version 2)
Quarter: 2022Q3

REPORT INFORMATION
  Report Type: Spontaneous
  Country: US (occurrence: US)
  Receive Date: 20220615
  Receipt Date: 20220729
  Transmission Date: 20221027
  Serious: Yes (Other)
  Sender: FDA-Public Use
  Company Number: US-SA-SAC20220613001372

PATIENT
  Sex: Female

DRUGS (2)
  1. AUBAGIO [Suspect]
     Active Substance: TERIFLUNOMIDE
     Indication: Multiple sclerosis
     Dosage: 14 MG, QD
     Route: 048
  2. BAFIERTAM [Concomitant]
     Active Substance: MONOMETHYL FUMARATE
     Dosage: UNK

REACTIONS (5)
  - Renal impairment [Unknown]
  - Muscular weakness [Unknown]
  - Back pain [Unknown]
  - Nausea [Unknown]
  - Alopecia [Unknown]
